FAERS Safety Report 7487722-3 (Version None)
Quarter: 2011Q2

REPORT INFORMATION
  Report Type: 
  Country: None (occurrence: None)
  Receive Date: 20110518
  Receipt Date: 20110505
  Transmission Date: 20111010
  Serious: Yes (Other)
  Sender: FDA-Public Use
  Company Number: PHHO2011US07896

PATIENT
  Sex: Female
  Weight: 59 kg

DRUGS (15)
  1. ACETAMINOPHEN [Concomitant]
     Indication: ARTHRALGIA
     Dosage: UNK
     Dates: start: 20090701
  2. NAMENDA [Concomitant]
     Indication: DEMENTIA ALZHEIMER'S TYPE
     Dosage: UNK
     Dates: start: 20050101
  3. TIMOLOL MALEATE [Concomitant]
     Indication: GLAUCOMA
     Dosage: UNK
     Dates: start: 20030101
  4. ATIVAN [Concomitant]
     Indication: ANXIETY
     Dosage: UNK
     Dates: start: 20100701
  5. VITAMIN D [Concomitant]
     Dosage: UNK
     Dates: start: 20100201
  6. EXELON [Suspect]
     Indication: DEMENTIA ALZHEIMER'S TYPE
     Dosage: 10CM^2
     Route: 062
     Dates: start: 20110310, end: 20110414
  7. CENTRUM [Concomitant]
     Dosage: UNK
     Dates: start: 20020101
  8. EXELON [Suspect]
     Dosage: 15CM^2
     Route: 062
     Dates: start: 20110415, end: 20110426
  9. MIRALAX [Concomitant]
     Indication: CONSTIPATION
     Dosage: UNK
     Dates: start: 20100401
  10. POTASSIUM CHLORIDE [Concomitant]
     Indication: OEDEMA PERIPHERAL
     Dosage: UNK
     Dates: start: 20090701
  11. RISPERDAL [Concomitant]
     Indication: AGITATION
     Dosage: UNK
     Dates: start: 20090901
  12. PRAVASTATIN [Concomitant]
     Indication: HYPERCHOLESTEROLAEMIA
     Dosage: UNK
     Dates: start: 20110301
  13. VITAMIN B-12 [Concomitant]
     Dosage: UNK
     Dates: start: 20090401
  14. NYSTATIN [Concomitant]
     Indication: RASH
     Dosage: UNK
     Dates: start: 20100101
  15. LASIX [Concomitant]
     Indication: OEDEMA PERIPHERAL
     Dosage: UNK
     Dates: start: 20090701

REACTIONS (7)
  - DECREASED APPETITE [None]
  - DIZZINESS [None]
  - LETHARGY [None]
  - MALAISE [None]
  - HEADACHE [None]
  - ACCIDENTAL OVERDOSE [None]
  - VOMITING [None]
